FAERS Safety Report 11331642 (Version 1)
Quarter: 2015Q3

REPORT INFORMATION
  Report Type: Spontaneous
  Country: US (occurrence: US)
  Receive Date: 20150803
  Receipt Date: 20150803
  Transmission Date: 20151125
  Serious: Yes (Other)
  Sender: FDA-Public Use
  Company Number: US-MYLANLABS-2015M1025757

PATIENT

DRUGS (1)
  1. ETHINYLESTRADIOL/NORETHISTERONE [Suspect]
     Active Substance: ETHINYL ESTRADIOL\NORETHINDRONE
     Indication: ORAL CONTRACEPTION
     Dosage: 35MCG/1.0MG
     Route: 048

REACTIONS (3)
  - HER-2 positive breast cancer [None]
  - Progesterone receptor assay positive [None]
  - Invasive ductal breast carcinoma [Recovering/Resolving]
